FAERS Safety Report 8219861-3 (Version None)
Quarter: 2012Q1

REPORT INFORMATION
  Report Type: 
  Country: None (occurrence: None)
  Receive Date: 20120319
  Receipt Date: 20120314
  Transmission Date: 20120608
  Serious: Yes (Death, Hospitalization)
  Sender: FDA-Public Use
  Company Number: CA-CELGENEUS-028-C5013-11043771

PATIENT
  Sex: Male
  Weight: 83.1 kg

DRUGS (22)
  1. VANCOMYCIN [Concomitant]
     Dosage: 500 MILLIGRAM
     Route: 041
     Dates: start: 20110401
  2. PIPTAZONE [Concomitant]
     Dosage: 2.25 GRAM
     Route: 041
     Dates: start: 20110401
  3. BENADRYL [Concomitant]
     Dosage: 25-50MG
     Route: 041
     Dates: start: 20110422
  4. DIGOXIN [Concomitant]
     Indication: ATRIAL FIBRILLATION
  5. IMMUNE GLOBULIN INTRAVENOUS (HUMAN) [Concomitant]
     Dosage: 1 DOSE
     Route: 041
     Dates: start: 20110427
  6. DEFEROXAMINE MESYLATE [Concomitant]
     Dosage: 500 MILLIGRAM
     Route: 030
     Dates: start: 20110401
  7. BENADRYL [Concomitant]
     Dosage: 25-50MG
     Route: 048
     Dates: start: 20110422
  8. PLATELETS [Concomitant]
     Dosage: 1 DOSE
     Route: 041
     Dates: start: 20110427
  9. NITROGLYCERIN [Concomitant]
     Dosage: UP TO 3 SPRAYS
     Route: 060
     Dates: start: 20110105
  10. DEFEROXAMINE MESYLATE [Concomitant]
     Dosage: 500 MILLIGRAM
     Route: 041
     Dates: start: 20110430, end: 20110430
  11. SENOKOT [Concomitant]
     Indication: CONSTIPATION
     Dosage: 2 TABLET
     Route: 048
     Dates: start: 20110401
  12. TYLENOL [Concomitant]
     Indication: PAIN
     Dosage: 650 MILLIGRAM
     Route: 048
     Dates: start: 20110401
  13. TYLENOL W/ CODEINE NO. 3 [Concomitant]
     Indication: PAIN
     Dosage: 1-2 TABS
     Route: 048
     Dates: start: 20110422
  14. MORPHINE [Concomitant]
     Dosage: 2.5-5MG
     Route: 041
     Dates: start: 20110423, end: 20110429
  15. VITAMIN K TAB [Concomitant]
     Dosage: 10 MILLIGRAM
     Route: 048
     Dates: start: 20110401
  16. VANCOMYCIN [Concomitant]
     Dosage: 1 GRAM
     Route: 041
     Dates: start: 20110401
  17. CLOXACILLIN SODIUM [Concomitant]
     Route: 041
  18. HEPARIN [Concomitant]
     Indication: ANTICOAGULANT THERAPY
     Dosage: 5000 UNITS
     Route: 058
     Dates: start: 20110401
  19. DIGOXIN [Concomitant]
     Dosage: .625 MILLIGRAM
     Route: 041
     Dates: start: 20110422
  20. DIOVOL [Concomitant]
     Dosage: 30 MILLILITER
     Route: 048
     Dates: start: 20110422
  21. LENALIDOMIDE [Suspect]
     Dosage: 10 MILLIGRAM
     Route: 048
     Dates: start: 20110224, end: 20110420
  22. ROCALTROL [Concomitant]
     Indication: SUPPLEMENTATION THERAPY
     Dosage: .25 MILLIGRAM
     Route: 048
     Dates: start: 20110401

REACTIONS (8)
  - SEPSIS [None]
  - MYELODYSPLASTIC SYNDROME [None]
  - DISEASE PROGRESSION [None]
  - PNEUMONIA [None]
  - STAPHYLOCOCCAL INFECTION [None]
  - LUNG INFECTION [None]
  - PANCREATITIS ACUTE [None]
  - PANCYTOPENIA [None]
